FAERS Safety Report 11286821 (Version 1)
Quarter: 2015Q3

REPORT INFORMATION
  Report Type: Spontaneous
  Country: GR (occurrence: GR)
  Receive Date: 20150721
  Receipt Date: 20150721
  Transmission Date: 20151125
  Serious: Yes (Other)
  Sender: FDA-Public Use
  Company Number: GR-009507513-1507GRC008004

PATIENT
  Age: 83 Year
  Sex: Female

DRUGS (2)
  1. SOLOSA [Concomitant]
     Active Substance: GLIMEPIRIDE
  2. JANUMET [Suspect]
     Active Substance: METFORMIN HYDROCHLORIDE\SITAGLIPTIN PHOSPHATE
     Indication: DIABETES MELLITUS
     Dosage: 2 TABLETS EVERY DAY
     Route: 048
     Dates: start: 2010

REACTIONS (2)
  - Hip surgery [Unknown]
  - Hip fracture [Unknown]

NARRATIVE: CASE EVENT DATE: 2013
